FAERS Safety Report 18118489 (Version 10)
Quarter: 2020Q4

REPORT INFORMATION
  Report Type: Spontaneous
  Country: US (occurrence: US)
  Receive Date: 20200806
  Receipt Date: 20201211
  Transmission Date: 20210113
  Serious: Yes (Hospitalization, Other)
  Sender: FDA-Public Use
  Company Number: US-GLAXOSMITHKLINE-US2020AMR151722

PATIENT
  Sex: Female

DRUGS (6)
  1. FLOLAN [Suspect]
     Active Substance: EPOPROSTENOL SODIUM
     Indication: PULMONARY ARTERIAL HYPERTENSION
     Dosage: 33 NG/KG/MIN, CO, FLOLAN DOSE INCREASED TO 42NG/KG/MIN.
     Route: 042
     Dates: start: 20050202
  2. FLOLAN DILUENT PH 12 [Suspect]
     Active Substance: GLYCINE\MANNITOL\SODIUM CHLORIDE
     Indication: PULMONARY ARTERIAL HYPERTENSION
     Dosage: UNK
     Route: 042
     Dates: start: 20190123
  3. FLOLAN [Suspect]
     Active Substance: EPOPROSTENOL SODIUM
     Indication: PULMONARY ARTERIAL HYPERTENSION
     Dosage: 42 NG/KG/MIN
     Dates: start: 20050202
  4. FLOLAN [Suspect]
     Active Substance: EPOPROSTENOL SODIUM
     Indication: PULMONARY ARTERIAL HYPERTENSION
     Dosage: 33 NG/KG/MIN, CO
     Route: 042
     Dates: start: 20050202
  5. FLOLAN DILUENT PH 12 [Suspect]
     Active Substance: GLYCINE\MANNITOL\SODIUM CHLORIDE
     Dosage: UNK
  6. FLOLAN [Suspect]
     Active Substance: EPOPROSTENOL SODIUM
     Indication: PULMONARY ARTERIAL HYPERTENSION
     Dosage: 33 NG/KG/MIN, CO
     Route: 042
     Dates: start: 20050202

REACTIONS (8)
  - Pulmonary hypertension [Recovered/Resolved]
  - Catheter site haemorrhage [Recovered/Resolved]
  - Fluid retention [Recovered/Resolved]
  - Blood potassium abnormal [Recovered/Resolved]
  - Palpitations [Recovering/Resolving]
  - Device leakage [Recovered/Resolved]
  - Hospitalisation [Recovered/Resolved]
  - Blood pressure abnormal [Recovered/Resolved]
